FAERS Safety Report 6368424-3 (Version None)
Quarter: 2009Q3

REPORT INFORMATION
  Report Type: 
  Country: None (occurrence: None)
  Receive Date: 20090916
  Receipt Date: 20090908
  Transmission Date: 20100115
  Serious: Yes (Other)
  Sender: FDA-Public Use
  Company Number: 2009010228

PATIENT
  Age: 72 Year
  Sex: Female
  Weight: 70.7611 kg

DRUGS (25)
  1. NUVIGIL [Suspect]
     Indication: SLEEP APNOEA SYNDROME
     Dosage: 150 MG (150 MG, 1 IN 1 D), ORAL
     Route: 048
     Dates: start: 20090824, end: 20090827
  2. NUVIGIL [Suspect]
     Indication: SLEEP APNOEA SYNDROME
     Dosage: 150 MG (150 MG, 1 IN 1 D), ORAL
     Route: 048
     Dates: start: 20090901, end: 20090904
  3. SYNTHROID [Concomitant]
  4. DIOVAN [Concomitant]
  5. CARTIA CT (DILTIAZEM) [Concomitant]
  6. CLONIDINE [Concomitant]
  7. LEXAPRO [Concomitant]
  8. TRIAMTERENE AND HYDROCHLOROTHIAZIDE [Concomitant]
  9. SIMVASTATIN [Concomitant]
  10. ATENOLOL [Concomitant]
  11. PRISTIQ (DESVENLAFAXINSUCCINATE) [Concomitant]
  12. LORAZEPAM [Concomitant]
  13. RANITIDINE [Concomitant]
  14. PRILOSEC [Concomitant]
  15. ASPIRIN [Concomitant]
  16. AMBIEN [Concomitant]
  17. IBUPROFEN [Concomitant]
  18. MULTIPLE VITAMINS (VITAMINS NOS) [Concomitant]
  19. CALCIUM (CALCIUM) [Concomitant]
  20. COENZYME Q10 [Concomitant]
  21. OMEGA 2 FISH OIL (FISH OIL) [Concomitant]
  22. COSAMIN DS (ASCORBIC ACID, GLUCOSAMINE HYDROCHLORIDE, CHONDROITIN SULF [Concomitant]
  23. VITAMIN B2 (RIBOFLAVIN) [Concomitant]
  24. MAGNESIUM (MAGNESIUM) [Concomitant]
  25. VITAMIN B12 [Concomitant]

REACTIONS (4)
  - APHTHOUS STOMATITIS [None]
  - COUGH [None]
  - OROPHARYNGEAL PAIN [None]
  - STEVENS-JOHNSON SYNDROME [None]
